FAERS Safety Report 17247562 (Version 1)
Quarter: 2020Q1

REPORT INFORMATION
  Report Type: Spontaneous
  Country: US (occurrence: US)
  Receive Date: 20200107
  Receipt Date: 20200107
  Transmission Date: 20200409
  Serious: Yes (Disabling)
  Sender: FDA-Public Use
  Company Number: None

PATIENT
  Age: 39 Year
  Sex: Female
  Weight: 65.25 kg

DRUGS (6)
  1. ERGOCALCIFEROL. [Concomitant]
     Active Substance: ERGOCALCIFEROL
  2. FOLIC ACID. [Concomitant]
     Active Substance: FOLIC ACID
  3. VIMPAT [Suspect]
     Active Substance: LACOSAMIDE
     Indication: SEIZURE
     Dosage: ?          QUANTITY:20 ML;OTHER ROUTE:PEG TUBE?
     Dates: start: 20150101, end: 20200101
  4. DANTRALENE [Concomitant]
  5. PHENYTOIN. [Concomitant]
     Active Substance: PHENYTOIN
  6. NORETHIDRONE [Concomitant]

REACTIONS (7)
  - Diarrhoea [None]
  - Vomiting [None]
  - Disease progression [None]
  - Abdominal pain [None]
  - Weight decreased [None]
  - Abdominal distension [None]
  - Product formulation issue [None]

NARRATIVE: CASE EVENT DATE: 20190923
